FAERS Safety Report 22074198 (Version 1)
Quarter: 2023Q1

REPORT INFORMATION
  Report Type: Spontaneous
  Country: CN (occurrence: CN)
  Receive Date: 20230308
  Receipt Date: 20230308
  Transmission Date: 20230417
  Serious: Yes (Other)
  Sender: FDA-Public Use
  Company Number: CN-009507513-2303CHN001429

PATIENT
  Age: 63 Year
  Sex: Female
  Weight: 65 kg

DRUGS (3)
  1. CANCIDAS [Suspect]
     Active Substance: CASPOFUNGIN ACETATE
     Indication: Anti-infective therapy
     Dosage: 50 MILLIGRAM, QD
     Route: 041
     Dates: start: 20230210, end: 20230216
  2. TIGECYCLINE [Concomitant]
     Active Substance: TIGECYCLINE
     Indication: Anti-infective therapy
     Dosage: 50 MILLIGRAM, Q12H
     Route: 041
     Dates: start: 20230127, end: 20230216
  3. POLYMYXIN B SULFATE [Concomitant]
     Active Substance: POLYMYXIN B SULFATE
     Indication: Anti-infective therapy
     Dosage: 500000 INTERNATIONAL UNIT, Q12H
     Dates: start: 20230127, end: 20230216

REACTIONS (1)
  - Liver injury [Recovering/Resolving]

NARRATIVE: CASE EVENT DATE: 20230216
